FAERS Safety Report 18539480 (Version 2)
Quarter: 2020Q4

REPORT INFORMATION
  Report Type: Spontaneous
  Country: IT (occurrence: IT)
  Receive Date: 20201124
  Receipt Date: 20201125
  Transmission Date: 20210114
  Serious: Yes (Other)
  Sender: FDA-Public Use
  Company Number: IT-TEVA-2020-IT-1851478

PATIENT
  Age: 65 Year
  Sex: Female

DRUGS (3)
  1. CHLORPHENAMINE [Concomitant]
     Active Substance: CHLORPHENIRAMINE MALEATE
     Indication: ANTIALLERGIC THERAPY
     Dosage: 10 MG
     Route: 042
     Dates: start: 20201104, end: 20201104
  2. OXALIPLATINO TEVA [Suspect]
     Active Substance: OXALIPLATIN
     Indication: ADENOCARCINOMA OF COLON
     Dosage: 130 MG
     Route: 041
     Dates: start: 20201104, end: 20201104
  3. SOLDESAM [Concomitant]
     Active Substance: DEXAMETHASONE
     Indication: ANAPHYLAXIS PROPHYLAXIS
     Dosage: 8 MG
     Route: 042
     Dates: start: 20201104, end: 20201104

REACTIONS (3)
  - Infusion related reaction [Recovered/Resolved]
  - Pruritus [Recovered/Resolved]
  - Dyspnoea at rest [Recovered/Resolved]

NARRATIVE: CASE EVENT DATE: 20201104
